FAERS Safety Report 9878749 (Version 2)
Quarter: 2014Q1

REPORT INFORMATION
  Report Type: Spontaneous
  Country: US (occurrence: US)
  Receive Date: 20140206
  Receipt Date: 20140303
  Transmission Date: 20141002
  Serious: Yes (Other)
  Sender: FDA-Public Use
  Company Number: US-GLAXOSMITHKLINE-A1055583A

PATIENT
  Age: 66 Year
  Sex: Female

DRUGS (25)
  1. ADVAIR [Suspect]
     Indication: ASTHMA
     Dosage: 1PUFF TWICE PER DAY
     Route: 055
  2. ADVAIR [Suspect]
     Indication: BRONCHITIS
     Dosage: 1PUFF TWICE PER DAY
     Route: 055
  3. PREDNISONE [Suspect]
     Indication: POLYMYALGIA RHEUMATICA
  4. CLARITIN-D [Concomitant]
  5. UNSPECIFIED MEDICATIONS [Concomitant]
     Indication: NASOPHARYNGITIS
  6. COUGH SYRUP [Concomitant]
  7. COUGH DROPS [Concomitant]
  8. ALBUTEROL [Concomitant]
  9. ALPRAZOLAM [Concomitant]
  10. VITAMIN B COMPLEX [Concomitant]
  11. CALCIUM WITH VITAMIN D [Concomitant]
  12. COQ10 [Concomitant]
  13. RED YEAST RICE [Concomitant]
  14. DILTIAZEM [Concomitant]
  15. VITAMIN D [Concomitant]
  16. NEXIUM [Concomitant]
  17. FLONASE [Concomitant]
  18. FOLIC ACID [Concomitant]
  19. METHOTREXATE SODIUM [Concomitant]
  20. GLUCOSAMINE [Concomitant]
  21. LISINOPRIL [Concomitant]
  22. MULTI-VITAMIN [Concomitant]
  23. OMEGA 3 FISH OIL [Concomitant]
  24. PAROXETINE [Concomitant]
  25. IBUPROFEN [Concomitant]

REACTIONS (8)
  - Adrenal suppression [Recovered/Resolved]
  - Pneumonia [Recovering/Resolving]
  - Bronchitis [Recovering/Resolving]
  - Sinusitis [Unknown]
  - Asthma [Recovered/Resolved]
  - Drug ineffective [Unknown]
  - Adverse drug reaction [Recovered/Resolved]
  - Product quality issue [Unknown]
